FAERS Safety Report 19167321 (Version 2)
Quarter: 2021Q2

REPORT INFORMATION
  Report Type: Spontaneous
  Country: GR (occurrence: GR)
  Receive Date: 20210422
  Receipt Date: 20210617
  Transmission Date: 20210717
  Serious: Yes (Hospitalization, Other)
  Sender: FDA-Public Use
  Company Number: GR-LUPIN PHARMACEUTICALS INC.-2021-04929

PATIENT
  Age: 42 Year
  Sex: Female

DRUGS (1)
  1. LEVONORGESTREL. [Suspect]
     Active Substance: LEVONORGESTREL
     Indication: POST COITAL CONTRACEPTION
     Dosage: 1.5 MILLIGRAM
     Route: 048

REACTIONS (8)
  - Cough [Unknown]
  - Anaemia [Unknown]
  - Leukocytosis [Unknown]
  - Haemoptysis [Unknown]
  - Hypoxia [Unknown]
  - Pulmonary alveolar haemorrhage [Recovered/Resolved]
  - Haematocrit decreased [Unknown]
  - Hypersensitivity [Unknown]
